FAERS Safety Report 5343829-8 (Version None)
Quarter: 2007Q2

REPORT INFORMATION
  Report Type: 
  Country: None (occurrence: None)
  Receive Date: 20070531
  Receipt Date: 20070517
  Transmission Date: 20071010
  Serious: No
  Sender: FDA-Public Use
  Company Number: TPA2007A01029

PATIENT
  Age: 55 Year
  Sex: Male

DRUGS (3)
  1. ROZEREM [Suspect]
     Indication: INSOMNIA
     Dosage: 8 MG, HS, PER ORAL
     Route: 048
     Dates: start: 20070101, end: 20070101
  2. UNKNOWN HIGH CHOLESTEROL MEDICATION (CHOLESTEROL - AND TRIGLYCERIDE RE [Concomitant]
  3. UNKNOWN HIGH BLOOD PRESSURE MEDICATION (ALL OTHER THERAPEUTIC PRODUCTS [Concomitant]

REACTIONS (2)
  - INITIAL INSOMNIA [None]
  - SELF-MEDICATION [None]
